FAERS Safety Report 25066014 (Version 2)
Quarter: 2025Q1

REPORT INFORMATION
  Report Type: Spontaneous
  Country: IT (occurrence: IT)
  Receive Date: 20250312
  Receipt Date: 20250325
  Transmission Date: 20250409
  Serious: Yes (Death, Other)
  Sender: ADC THERAPEUTICS
  Company Number: IT-BIOVITRUM-2025-IT-003243

PATIENT
  Age: 67 Year
  Sex: Male

DRUGS (3)
  1. ZYNLONTA [Suspect]
     Active Substance: LONCASTUXIMAB TESIRINE-LPYL
     Indication: Product used for unknown indication
     Route: 042
     Dates: start: 20240919, end: 20240919
  2. ZYNLONTA [Suspect]
     Active Substance: LONCASTUXIMAB TESIRINE-LPYL
     Route: 042
  3. ZYNLONTA [Suspect]
     Active Substance: LONCASTUXIMAB TESIRINE-LPYL
     Route: 042
     Dates: start: 20240921, end: 20240921

REACTIONS (2)
  - Condition aggravated [Fatal]
  - Respiratory failure [Fatal]

NARRATIVE: CASE EVENT DATE: 20240921
